FAERS Safety Report 6462130-2 (Version None)
Quarter: 2009Q4

REPORT INFORMATION
  Report Type: 
  Country: None (occurrence: None)
  Receive Date: 20091130
  Receipt Date: 20091028
  Transmission Date: 20100525
  Serious: No
  Sender: FDA-Public Use
  Company Number: US-BAYER-200916205BCC

PATIENT
  Age: 67 Year
  Sex: Male
  Weight: 120 kg

DRUGS (4)
  1. ALEVE [Suspect]
     Indication: SCIATICA
     Dosage: TOTAL DAILY DOSE: 440 MG  UNIT DOSE: 220 MG
     Route: 048
     Dates: start: 20091028
  2. DICLOFENAC [Concomitant]
     Route: 065
  3. SKELAXIN [Concomitant]
     Route: 065
  4. ULTRACET [Concomitant]
     Route: 065

REACTIONS (1)
  - SCIATICA [None]
